FAERS Safety Report 5797093-6 (Version None)
Quarter: 2008Q3

REPORT INFORMATION
  Report Type: 
  Country: None (occurrence: None)
  Receive Date: 20080701
  Receipt Date: 20080624
  Transmission Date: 20090109
  Serious: Yes (Hospitalization)
  Sender: FDA-Public Use
  Company Number: US-WATSON-2008-03820

PATIENT
  Age: 76 Year
  Sex: Female

DRUGS (9)
  1. FENTANYL-100 (WATSON LABORATORIES) [Suspect]
     Indication: CANCER PAIN
     Dosage: 200 UG/HR
     Route: 062
     Dates: start: 20080101, end: 20080101
  2. FENTANYL-100 (WATSON LABORATORIES) [Suspect]
     Dosage: 100 UG/HR
     Route: 062
     Dates: start: 20080101, end: 20080101
  3. FENTANYL CITRATE (WATSON LABORATORIES) [Suspect]
     Indication: CANCER PAIN
     Dosage: 100 MCG BOLUS  X 2
     Route: 042
     Dates: start: 20080101, end: 20080101
  4. FENTANYL CITRATE (WATSON LABORATORIES) [Suspect]
     Dosage: 60UG/HR WITH BOLUS 40UG Q 10 MIN
     Route: 042
     Dates: start: 20080101, end: 20080101
  5. FENTANYL CITRATE (WATSON LABORATORIES) [Suspect]
     Dosage: 25 UG/HR BASAL RATE WITH 25 UG Q 15 MINUTES
     Route: 042
     Dates: start: 20080101, end: 20080101
  6. VANCOMYCIN [Concomitant]
     Indication: BACTERAEMIA
  7. NAFCILLIN SODIUM [Concomitant]
     Indication: BACTERAEMIA
     Dosage: UNK
  8. GABAPENTIN [Concomitant]
     Indication: CANCER PAIN
     Dosage: 300 MG, TID
  9. OLANZAPINE [Concomitant]
     Indication: DRUG USE FOR UNKNOWN INDICATION
     Dosage: 5 MG, DAILY

REACTIONS (6)
  - ALLODYNIA [None]
  - DELIRIUM [None]
  - HALLUCINATION [None]
  - MYOCLONUS [None]
  - NEUROTOXICITY [None]
  - PARADOXICAL PAIN [None]
